FAERS Safety Report 12019222 (Version 1)
Quarter: 2016Q1

REPORT INFORMATION
  Report Type: Report from Study
  Country: US (occurrence: US)
  Receive Date: 20160206
  Receipt Date: 20160206
  Transmission Date: 20160526
  Serious: No
  Sender: FDA-Public Use
  Company Number: US-ABBVIE-15K-163-1461832-00

PATIENT
  Age: 44 Year
  Sex: Female

DRUGS (2)
  1. HUMIRA [Suspect]
     Active Substance: ADALIMUMAB
     Indication: CROHN^S DISEASE
     Dosage: INITIAL DOSE
     Route: 065
     Dates: start: 20150903, end: 20150903
  2. HUMIRA [Suspect]
     Active Substance: ADALIMUMAB
     Route: 065

REACTIONS (4)
  - Myalgia [Recovering/Resolving]
  - Influenza like illness [Recovering/Resolving]
  - Headache [Recovering/Resolving]
  - Pain [Recovering/Resolving]

NARRATIVE: CASE EVENT DATE: 20150903
